FAERS Safety Report 20880358 (Version 14)
Quarter: 2024Q1

REPORT INFORMATION
  Report Type: Spontaneous
  Country: US (occurrence: US)
  Receive Date: 20220526
  Receipt Date: 20240115
  Transmission Date: 20240410
  Serious: Yes (Hospitalization, Other)
  Sender: FDA-Public Use
  Company Number: US-PFIZER INC-202101047781

PATIENT
  Age: 65 Year
  Sex: Female
  Weight: 56.236 kg

DRUGS (1)
  1. PREMPRO [Suspect]
     Active Substance: ESTROGENS, CONJUGATED\MEDROXYPROGESTERONE ACETATE
     Indication: Menopause
     Dosage: UNK
     Route: 048
     Dates: end: 20221101

REACTIONS (10)
  - Pain [Not Recovered/Not Resolved]
  - Blindness [Unknown]
  - Expired product administered [Unknown]
  - Sleep disorder [Unknown]
  - Malaise [Unknown]
  - Confusional state [Unknown]
  - Feeling abnormal [Not Recovered/Not Resolved]
  - Cognitive disorder [Unknown]
  - Fatigue [Unknown]
  - Hyperhidrosis [Unknown]

NARRATIVE: CASE EVENT DATE: 20220101
